FAERS Safety Report 7563442-1 (Version None)
Quarter: 2011Q2

REPORT INFORMATION
  Report Type: 
  Country: None (occurrence: None)
  Receive Date: 20110622
  Receipt Date: 20110616
  Transmission Date: 20111010
  Serious: Yes (Hospitalization)
  Sender: FDA-Public Use
  Company Number: D0071750A

PATIENT
  Sex: Female
  Weight: 50 kg

DRUGS (2)
  1. VOTRIENT [Suspect]
     Indication: METASTATIC RENAL CELL CARCINOMA
     Dosage: 400MG PER DAY
     Route: 048
     Dates: start: 20110607, end: 20110611
  2. OMEPRAZOLE [Concomitant]
     Dosage: 40MG PER DAY
     Route: 048
     Dates: start: 20110601

REACTIONS (3)
  - THROMBOSIS MESENTERIC VESSEL [None]
  - SMALL INTESTINAL RESECTION [None]
  - GASTROINTESTINAL NECROSIS [None]
